FAERS Safety Report 5200746-1 (Version None)
Quarter: 2006Q4

REPORT INFORMATION
  Report Type: 
  Country: None (occurrence: None)
  Receive Date: 20061016
  Receipt Date: 20060705
  Transmission Date: 20070319
  Serious: No
  Sender: FDA-Public Use
  Company Number: 2006SP002611

PATIENT
  Age: 63 Year
  Sex: Female
  Weight: 67.1324 kg

DRUGS (5)
  1. LUNESTA [Suspect]
     Indication: INITIAL INSOMNIA
     Dosage: 2 MG; ORAL
     Route: 048
     Dates: start: 20060703, end: 20060704
  2. EXCEDRIN (MIGRAINE) [Concomitant]
  3. ATORVASTATIN CALCIUM [Concomitant]
  4. CHONDROITIN W/ GLUCOSAMINE [Concomitant]
  5. ESTROGENS CONJUGATED [Concomitant]

REACTIONS (3)
  - DRUG INEFFECTIVE [None]
  - INSOMNIA [None]
  - POLLAKIURIA [None]
